FAERS Safety Report 8298152-9 (Version None)
Quarter: 2012Q2

REPORT INFORMATION
  Report Type: 
  Country: None (occurrence: None)
  Receive Date: 20120419
  Receipt Date: 20120403
  Transmission Date: 20120825
  Serious: Yes (Life-Threatening)
  Sender: FDA-Public Use
  Company Number: FR-CELGENEUS-056-21880-12040363

PATIENT
  Sex: Female

DRUGS (2)
  1. CLASTOBAN [Concomitant]
     Indication: OSTEOLYSIS
     Dosage: 1600 MILLIGRAM
     Route: 065
     Dates: start: 20100301
  2. REVLIMID [Suspect]
     Indication: MULTIPLE MYELOMA
     Dosage: 15 MILLIGRAM
     Route: 048
     Dates: start: 20060601, end: 20120301

REACTIONS (2)
  - BLADDER CANCER STAGE III [None]
  - HAEMATURIA [None]
